FAERS Safety Report 19928795 (Version 1)
Quarter: 2021Q4

REPORT INFORMATION
  Report Type: Spontaneous
  Country: CO (occurrence: CO)
  Receive Date: 20211007
  Receipt Date: 20211007
  Transmission Date: 20220303
  Serious: Yes (Other)
  Sender: FDA-Public Use
  Company Number: CO-BAYER-2021A225134

PATIENT
  Age: 17 Year
  Sex: Female

DRUGS (3)
  1. PRAZIQUANTEL [Suspect]
     Active Substance: PRAZIQUANTEL
     Dosage: UNK
     Route: 048
  2. ALBENDAZOLE [Suspect]
     Active Substance: ALBENDAZOLE
  3. CARBAMAZEPINE [Suspect]
     Active Substance: CARBAMAZEPINE

REACTIONS (4)
  - Completed suicide [None]
  - Somnolence [None]
  - Dysarthria [None]
  - Disorientation [None]
